FAERS Safety Report 15860630 (Version 2)
Quarter: 2019Q2

REPORT INFORMATION
  Report Type: Spontaneous
  Country: IT (occurrence: IT)
  Receive Date: 20190123
  Receipt Date: 20190605
  Transmission Date: 20190711
  Serious: Yes (Other)
  Sender: FDA-Public Use
  Company Number: IT-AUROBINDO-AUR-APL-2019-002588

PATIENT

DRUGS (2)
  1. AMLODIPINE [Suspect]
     Active Substance: AMLODIPINE BESYLATE
     Indication: HYPERTENSION
     Dosage: 1 DOSAGE FORM, ONCE A DAY
     Route: 048
     Dates: start: 20181003, end: 20181026
  2. DILZENER [Interacting]
     Active Substance: DILTIAZEM HYDROCHLORIDE
     Indication: HYPERTENSION
     Dosage: 180 MILLIGRAM, ONCE A DAY
     Route: 048
     Dates: start: 20181003, end: 20181026

REACTIONS (2)
  - Sinus tachycardia [Recovering/Resolving]
  - Gravitational oedema [Recovering/Resolving]

NARRATIVE: CASE EVENT DATE: 20181026
